FAERS Safety Report 12177639 (Version 1)
Quarter: 2016Q1

REPORT INFORMATION
  Report Type: Other
  Country: IN (occurrence: IN)
  Receive Date: 20160315
  Receipt Date: 20160315
  Transmission Date: 20160526
  Serious: No
  Sender: FDA-Public Use
  Company Number: IN-LUPIN PHARMACEUTICALS INC.-2016-00527

PATIENT
  Age: 60 Year
  Sex: Female

DRUGS (10)
  1. CLONAZEPAM. [Concomitant]
     Active Substance: CLONAZEPAM
     Indication: PANIC DISORDER
     Dosage: STARTED ON 0.5 MG AND OPTIMIZED TO 2 MG IN TWO DIVIDED DOSES
     Route: 065
  2. AMITRIPTILINE [Concomitant]
     Dosage: 25 MG
     Route: 065
  3. AMITRIPTILINE [Concomitant]
     Indication: PANIC DISORDER
     Dosage: 12.5 MG
     Route: 065
  4. ESCITALOPRAM [Concomitant]
     Active Substance: ESCITALOPRAM OXALATE
     Indication: PANIC DISORDER
     Dosage: 5 MG
     Route: 065
  5. ESCITALOPRAM [Concomitant]
     Active Substance: ESCITALOPRAM OXALATE
     Dosage: 10 MG
     Route: 065
  6. SERTRALINE [Suspect]
     Active Substance: SERTRALINE HYDROCHLORIDE
     Indication: PANIC DISORDER
     Dosage: 25 MG AND INCREASED BY 25 MG EVERY TWO WEEKS TILL 75 MG
     Route: 065
  7. SERTRALINE [Suspect]
     Active Substance: SERTRALINE HYDROCHLORIDE
     Dosage: 100 MG
     Route: 065
  8. PAROXETINE [Suspect]
     Active Substance: PAROXETINE\PAROXETINE HYDROCHLORIDE
     Indication: PANIC DISORDER
     Dosage: STARTED WITH 12.5 MG AND OPTIMIZED TO 25 MG
     Route: 065
  9. DESVENLAFAXINE. [Concomitant]
     Active Substance: DESVENLAFAXINE
     Indication: PANIC DISORDER
     Dosage: 25 MG
     Route: 065
  10. DESVENLAFAXINE. [Concomitant]
     Active Substance: DESVENLAFAXINE
     Dosage: 50 MG
     Route: 065

REACTIONS (3)
  - Decreased appetite [Unknown]
  - Nausea [Unknown]
  - Dizziness [Unknown]
